FAERS Safety Report 6039917-3 (Version None)
Quarter: 2009Q1

REPORT INFORMATION
  Report Type: 
  Country: None (occurrence: None)
  Receive Date: 20090116
  Receipt Date: 20090106
  Transmission Date: 20090719
  Serious: Yes (Hospitalization)
  Sender: FDA-Public Use
  Company Number: US-CELGENEUS-163-21880-09010223

PATIENT
  Sex: Female

DRUGS (2)
  1. REVLIMID [Suspect]
     Indication: MULTIPLE MYELOMA
     Route: 048
     Dates: start: 20081112
  2. REVLIMID [Suspect]
     Dosage: 25-15MG
     Dates: start: 20080825, end: 20081001

REACTIONS (3)
  - BACK PAIN [None]
  - DYSPHAGIA [None]
  - OROPHARYNGEAL PAIN [None]
